FAERS Safety Report 5006316-2 (Version None)
Quarter: 2006Q2

REPORT INFORMATION
  Report Type: 
  Country: None (occurrence: None)
  Receive Date: 20060516
  Receipt Date: 20060501
  Transmission Date: 20061013
  Serious: Yes (Hospitalization)
  Sender: FDA-Public Use
  Company Number: US-2005-025996

PATIENT
  Age: 57 Year
  Sex: Female

DRUGS (15)
  1. BETASERON [Suspect]
     Indication: MULTIPLE SCLEROSIS
     Dosage: 8 MIU EVERY 2D SUBCUTANEOUS
     Route: 058
     Dates: start: 19950629, end: 20000315
  2. BETASERON [Suspect]
     Indication: MULTIPLE SCLEROSIS
     Dosage: 8 MIU EVERY 2D SUBCUTANEOUS
     Route: 058
     Dates: start: 20050806
  3. PREDNISONE [Concomitant]
  4. PREVACID [Concomitant]
  5. LASIX [Concomitant]
  6. TEGRETOL [Concomitant]
  7. SYNTHROID [Concomitant]
  8. NEURONTIN [Concomitant]
  9. DURAGESIC-100 [Concomitant]
  10. TRAZODONE HCL [Concomitant]
  11. POTASSIUM CHLORIDE [Concomitant]
  12. SINGULAIR [Concomitant]
  13. WELLBUTRIN SR [Concomitant]
  14. LACTINEX (LACTOBACILLUS BULGARICUS) [Concomitant]
  15. IMODIUM [Concomitant]

REACTIONS (16)
  - ASTHMA [None]
  - BACTERIAL INFECTION [None]
  - CONDITION AGGRAVATED [None]
  - DEPRESSION [None]
  - DIARRHOEA [None]
  - ENTEROCOCCAL INFECTION [None]
  - HYPOTENSION [None]
  - HYPOTHYROIDISM [None]
  - IMMUNODEFICIENCY [None]
  - IMMUNODEFICIENCY COMMON VARIABLE [None]
  - MITRAL VALVE PROLAPSE [None]
  - MULTIPLE SCLEROSIS [None]
  - PATHOGEN RESISTANCE [None]
  - TRIGEMINAL NEURALGIA [None]
  - URINARY TRACT INFECTION [None]
  - VOMITING [None]
